FAERS Safety Report 13306424 (Version 2)
Quarter: 2017Q1

REPORT INFORMATION
  Report Type: Spontaneous
  Country: US (occurrence: US)
  Receive Date: 20170308
  Receipt Date: 20170309
  Transmission Date: 20170428
  Serious: No
  Sender: FDA-Public Use
  Company Number: US-BAYER-2017-042779

PATIENT
  Sex: Female

DRUGS (1)
  1. CLIMARA [Suspect]
     Active Substance: ESTRADIOL
     Route: 062

REACTIONS (7)
  - Dry skin [Recovered/Resolved]
  - Insomnia [None]
  - Hot flush [Recovered/Resolved]
  - Product quality issue [None]
  - Application site irritation [None]
  - Night sweats [Recovered/Resolved]
  - Product adhesion issue [None]
